FAERS Safety Report 20339308 (Version 2)
Quarter: 2022Q1

REPORT INFORMATION
  Report Type: Spontaneous
  Country: BE (occurrence: BE)
  Receive Date: 20220117
  Receipt Date: 20220309
  Transmission Date: 20220423
  Serious: Yes (Other)
  Sender: FDA-Public Use
  Company Number: BE-BAYER-2021A267511

PATIENT

DRUGS (2)
  1. EYLEA [Suspect]
     Active Substance: AFLIBERCEPT
     Indication: Retinopathy of prematurity
     Dosage: 0.025 ML, ONCE; BOTH EYES
     Route: 031
     Dates: start: 20211025, end: 20211025
  2. EYLEA [Suspect]
     Active Substance: AFLIBERCEPT
     Indication: Retinopathy of prematurity
     Dosage: UNK UNK, ONCE, BOTH EYES
     Route: 031
     Dates: start: 20220225, end: 20220225

REACTIONS (3)
  - Retinopathy of prematurity [Unknown]
  - Off label use [Unknown]
  - Drug effective for unapproved indication [Unknown]

NARRATIVE: CASE EVENT DATE: 20210101
